FAERS Safety Report 6776015-5 (Version None)
Quarter: 2010Q2

REPORT INFORMATION
  Report Type: 
  Country: None (occurrence: None)
  Receive Date: 20100617
  Receipt Date: 20100607
  Transmission Date: 20101027
  Serious: Yes (Other)
  Sender: FDA-Public Use
  Company Number: ZA-ABBOTT-10P-143-0649442-00

PATIENT
  Sex: Female

DRUGS (6)
  1. HUMIRA [Suspect]
     Indication: DRUG USE FOR UNKNOWN INDICATION
     Route: 058
     Dates: start: 20100521, end: 20100604
  2. METHOTREXATE [Concomitant]
     Indication: RHEUMATOID ARTHRITIS
     Route: 048
  3. FOLATE [Concomitant]
     Indication: RHEUMATOID ARTHRITIS
     Route: 048
  4. VALSARTAN [Concomitant]
     Indication: HYPOTENSION
     Route: 048
  5. CALTRATE PLUS [Concomitant]
     Indication: MINERAL SUPPLEMENTATION
     Route: 048
  6. STRONTIUM RANELATE [Concomitant]
     Indication: DRUG USE FOR UNKNOWN INDICATION
     Route: 048

REACTIONS (2)
  - HYPOAESTHESIA ORAL [None]
  - LIP SWELLING [None]
